FAERS Safety Report 9643803 (Version 1)
Quarter: 2013Q4

REPORT INFORMATION
  Report Type: Spontaneous
  Country: US (occurrence: US)
  Receive Date: 20131024
  Receipt Date: 20131024
  Transmission Date: 20140711
  Serious: Yes (Other)
  Sender: FDA-Public Use
  Company Number: PHHY2013US115357

PATIENT
  Age: 66 Year
  Sex: Male

DRUGS (4)
  1. ILOPERIDONE [Suspect]
     Indication: MAJOR DEPRESSION
     Dosage: 24 MG, QD
  2. PAROXETINE [Interacting]
     Indication: MAJOR DEPRESSION
     Dosage: 40 MG, QD
  3. CLARITHROMYCIN [Interacting]
     Dosage: 250 MG, BID
  4. METFORMIN [Concomitant]
     Indication: TYPE 2 DIABETES MELLITUS
     Dosage: UNK UKN, UNK

REACTIONS (5)
  - Electrocardiogram QT prolonged [Unknown]
  - Presyncope [Unknown]
  - Dizziness [Unknown]
  - Bronchitis [Unknown]
  - Drug interaction [Unknown]
